FAERS Safety Report 18334807 (Version 1)
Quarter: 2020Q4

REPORT INFORMATION
  Report Type: Report from Study
  Country: US (occurrence: US)
  Receive Date: 20201001
  Receipt Date: 20201001
  Transmission Date: 20210113
  Serious: Yes (Other)
  Sender: FDA-Public Use
  Company Number: US-ASTELLAS-2020US033223

PATIENT
  Age: 70 Year
  Sex: Male

DRUGS (1)
  1. ENZALUTAMIDE [Suspect]
     Active Substance: ENZALUTAMIDE
     Indication: PROSTATE CANCER
     Route: 048
     Dates: start: 20200725

REACTIONS (5)
  - Hallucination [Unknown]
  - Amnesia [Unknown]
  - Taste disorder [Unknown]
  - Back pain [Unknown]
  - Weight decreased [Unknown]

NARRATIVE: CASE EVENT DATE: 202007
